FAERS Safety Report 4763621-2 (Version None)
Quarter: 2005Q3

REPORT INFORMATION
  Report Type: 
  Country: None (occurrence: None)
  Receive Date: 20050908
  Receipt Date: 20050706
  Transmission Date: 20060218
  Serious: Yes (Death, Other)
  Sender: FDA-Public Use
  Company Number: PHBS2005JP09737

PATIENT
  Age: 14 Year
  Sex: Male

DRUGS (3)
  1. FLUDARABINE PHOSPHATE [Concomitant]
     Dosage: 30 MG/M2, QD
  2. BUSULFAN [Concomitant]
     Dosage: 4 MG/KG/DAY
  3. SANDIMMUNE [Suspect]
     Indication: STEM CELL TRANSPLANT
     Dosage: 3 MG/KG/DAY
     Route: 042

REACTIONS (8)
  - BLISTER [None]
  - COUGH [None]
  - DERMATITIS EXFOLIATIVE [None]
  - GRAFT VERSUS HOST DISEASE [None]
  - MALIGNANT NEOPLASM PROGRESSION [None]
  - METASTASES TO LUNG [None]
  - PLEURAL DISORDER [None]
  - SKIN EXFOLIATION [None]
